FAERS Safety Report 5142376-6 (Version None)
Quarter: 2006Q4

REPORT INFORMATION
  Report Type: 
  Country: None (occurrence: None)
  Receive Date: 20061102
  Receipt Date: 20061026
  Transmission Date: 20070319
  Serious: Yes (Death, Hospitalization)
  Sender: FDA-Public Use
  Company Number: FR-GLAXOSMITHKLINE-B0444478A

PATIENT
  Age: 92 Year
  Sex: Male

DRUGS (1)
  1. DEROXAT [Suspect]
     Dosage: 20MG PER DAY
     Route: 048
     Dates: start: 20060806, end: 20060810

REACTIONS (3)
  - CONVULSION [None]
  - DEATH [None]
  - HYPOCALCAEMIA [None]
